FAERS Safety Report 6246209-6 (Version None)
Quarter: 2009Q2

REPORT INFORMATION
  Report Type: 
  Country: None (occurrence: None)
  Receive Date: 20090626
  Receipt Date: 20090424
  Transmission Date: 20091009
  Serious: Yes (Hospitalization, Disabling)
  Sender: FDA-Public Use
  Company Number: FI-BIOGENIDEC-2009BI012569

PATIENT
  Age: 52 Year
  Sex: Female

DRUGS (6)
  1. TYSABRI [Suspect]
     Indication: MULTIPLE SCLEROSIS
     Route: 042
     Dates: start: 20071023, end: 20081211
  2. LAMICTAL [Concomitant]
     Indication: PAIN
     Route: 048
     Dates: start: 20031006
  3. MOBIC [Concomitant]
     Indication: PAIN
  4. PANACOD [Concomitant]
     Indication: PAIN
     Route: 048
     Dates: start: 20040101
  5. TIZANIDINE HCL [Concomitant]
     Indication: MUSCLE SPASTICITY
     Route: 048
     Dates: start: 20040101
  6. SPASMO-LYT [Concomitant]
     Indication: DYSURIA
     Route: 048
     Dates: start: 20070801

REACTIONS (4)
  - COLON CANCER [None]
  - HEPATIC ENZYME INCREASED [None]
  - METASTASES TO LIVER [None]
  - METASTASES TO LUNG [None]
